FAERS Safety Report 8406350-6 (Version None)
Quarter: 2012Q2

REPORT INFORMATION
  Report Type: 
  Country: None (occurrence: None)
  Receive Date: 20120529
  Receipt Date: 20020507
  Transmission Date: 20120825
  Serious: Yes (Other)
  Sender: FDA-Public Use
  Company Number: JP-2012-12142

PATIENT

DRUGS (4)
  1. PLETAL [Suspect]
  2. URINORM (BENZBROMARONE) [Concomitant]
  3. CALCIUM CHANNEL BLOCKERS (CALCIUM CHANNEL BLOCKERS) [Concomitant]
  4. DIGOXIN [Concomitant]

REACTIONS (1)
  - PERICARDITIS [None]
